FAERS Safety Report 24652012 (Version 1)
Quarter: 2024Q4

REPORT INFORMATION
  Report Type: Spontaneous
  Country: PK (occurrence: PK)
  Receive Date: 20241122
  Receipt Date: 20241122
  Transmission Date: 20250114
  Serious: Yes (Other)
  Sender: Steriscience PTE
  Company Number: PK-STERISCIENCE B.V.-2024-ST-001937

PATIENT
  Age: 34 Year
  Sex: Female

DRUGS (11)
  1. METOPROLOL [Suspect]
     Active Substance: METOPROLOL
     Indication: Mitral valve stenosis
     Dosage: 25 MILLIGRAM, BID
     Route: 065
  2. METOPROLOL [Suspect]
     Active Substance: METOPROLOL
     Indication: Aortic stenosis
  3. MIDAZOLAM [Suspect]
     Active Substance: MIDAZOLAM
     Indication: Product used for unknown indication
     Dosage: 3.75 MILLIGRAM
     Route: 048
  4. CISATRACURIUM [Suspect]
     Active Substance: CISATRACURIUM
     Indication: Muscle relaxant therapy
     Dosage: 0.2 MILLIGRAM/KILOGRAM
     Route: 065
  5. KETAMINE [Suspect]
     Active Substance: KETAMINE
     Indication: Product used for unknown indication
     Dosage: 20 MILLIGRAM
  6. LIDOCAINE [Suspect]
     Active Substance: LIDOCAINE
     Indication: Product used for unknown indication
     Dosage: 4 PERCENT LIDOCAINE 3CM3 IN 2CM3 SODIUM-CHLORIDE (15?MINUTES)
     Route: 065
  7. NOREPINEPHRINE [Suspect]
     Active Substance: NOREPINEPHRINE\NOREPINEPHRINE BITARTRATE
     Indication: Blood pressure management
     Dosage: 0.02- 0.04??G/KG/MIN
     Route: 065
  8. PROPOFOL [Suspect]
     Active Substance: PROPOFOL
     Indication: Product used for unknown indication
     Dosage: 50 MILLIGRAM
     Route: 065
  9. SEVOFLURANE [Suspect]
     Active Substance: SEVOFLURANE
     Indication: Muscle relaxant therapy
     Dosage: 2-3 PERCENT
     Route: 065
  10. SODIUM CHLORIDE [Suspect]
     Active Substance: SODIUM CHLORIDE
     Indication: Product used for unknown indication
     Dosage: LIDOCAINE 3CM3 IN 2CM3 SODIUM-CHLORIDE (FOR 15?MINUTES)
     Route: 065
  11. SUCCINYLCHOLINE CHLORIDE [Suspect]
     Active Substance: SUCCINYLCHOLINE CHLORIDE
     Indication: Product used for unknown indication
     Dosage: 100 MILLIGRAM
     Route: 065

REACTIONS (4)
  - Foetal growth restriction [Unknown]
  - Premature delivery [Unknown]
  - Maternal exposure during pregnancy [Unknown]
  - Off label use [Unknown]
